FAERS Safety Report 16065502 (Version 1)
Quarter: 2019Q1

REPORT INFORMATION
  Report Type: Spontaneous
  Country: US (occurrence: US)
  Receive Date: 20190313
  Receipt Date: 20190313
  Transmission Date: 20190418
  Serious: Yes (Hospitalization)
  Sender: FDA-Public Use
  Company Number: US-ASTRAZENECA-2019SE37895

PATIENT
  Age: 24458 Day
  Sex: Female
  Weight: 43.1 kg

DRUGS (1)
  1. SYMBICORT [Suspect]
     Active Substance: BUDESONIDE\FORMOTEROL FUMARATE DIHYDRATE
     Dosage: 160/4.5 UG TWO PUFFS TWICE A DAY
     Route: 055

REACTIONS (5)
  - Blood glucose increased [Unknown]
  - Diabetes mellitus [Unknown]
  - Device issue [Unknown]
  - Wrong technique in device usage process [Unknown]
  - Dyspnoea [Recovered/Resolved]

NARRATIVE: CASE EVENT DATE: 20190210
